FAERS Safety Report 16242416 (Version 1)
Quarter: 2019Q2

REPORT INFORMATION
  Report Type: Spontaneous
  Country: AT (occurrence: AT)
  Receive Date: 20190426
  Receipt Date: 20190426
  Transmission Date: 20190711
  Serious: Yes (Other)
  Sender: FDA-Public Use
  Company Number: AT-ACCORD-109226

PATIENT
  Age: 48 Year
  Sex: Female

DRUGS (13)
  1. NOZINAN [Suspect]
     Active Substance: LEVOMEPROMAZINE
     Indication: PRODUCT USED FOR UNKNOWN INDICATION
     Dates: start: 20170910
  2. SEROQUEL [Concomitant]
     Active Substance: QUETIAPINE FUMARATE
     Indication: PRODUCT USED FOR UNKNOWN INDICATION
  3. ZIPRASIDONE/ZIPRASIDONE HYDROCHLORIDE/ZIPRASIDONE MESILATE [Suspect]
     Active Substance: ZIPRASIDONE HYDROCHLORIDE\ZIPRASIDONE MESYLATE
     Indication: PRODUCT USED FOR UNKNOWN INDICATION
     Dosage: 1200 MG PER DAY
     Route: 065
     Dates: start: 20181009
  4. CYMBALTA [Suspect]
     Active Substance: DULOXETINE HYDROCHLORIDE
     Indication: PRODUCT USED FOR UNKNOWN INDICATION
     Dosage: FROM 04-DEC-2018, 120 MG 11-SEP-2018 TO 03-DEC-2018(120 MG PER DAY)
     Dates: start: 201808, end: 20180910
  5. TEMESTA (LORAZEPAM) [Suspect]
     Active Substance: LORAZEPAM
     Indication: PRODUCT USED FOR UNKNOWN INDICATION
     Dosage: 2 MG PER DAY,2.5 MG FROM FROM 28-SEP-2018
     Route: 065
  6. TEMESTA [Concomitant]
     Dosage: MENTIONED AS 2 MG, QD IN CASE AT-OTSUKA-2019_001066
     Dates: start: 20180924, end: 20180928
  7. ZELDOX [Concomitant]
     Active Substance: ZIPRASIDONE
     Dates: start: 20180909
  8. TOPIRAMATE. [Concomitant]
     Active Substance: TOPIRAMATE
     Dates: start: 20170908
  9. TRITTICO [Suspect]
     Active Substance: TRAZODONE HYDROCHLORIDE
     Indication: PRODUCT USED FOR UNKNOWN INDICATION
     Dosage: 300 MG PER DAY
     Dates: start: 20180910
  10. QUETIAPINE. [Suspect]
     Active Substance: QUETIAPINE
     Indication: PRODUCT USED FOR UNKNOWN INDICATION
     Dosage: 50MG PER DAY
     Dates: start: 20181116
  11. ARIPIPRAZOLE. [Suspect]
     Active Substance: ARIPIPRAZOLE
     Indication: PRODUCT USED FOR UNKNOWN INDICATION
     Dosage: 15 MG,1 D TO 2017
     Route: 065
     Dates: start: 2017, end: 20181009
  12. RISPERDAL [Suspect]
     Active Substance: RISPERIDONE
     Indication: DEPRESSION
     Dosage: 4 MG PER DAY
     Route: 065
     Dates: start: 20180830, end: 20180925
  13. TRESLEEN [Suspect]
     Active Substance: SERTRALINE HYDROCHLORIDE
     Indication: PRODUCT USED FOR UNKNOWN INDICATION
     Dosage: 100 MG, QD
     Dates: start: 20180914

REACTIONS (3)
  - Urinary retention [Recovering/Resolving]
  - Blood prolactin increased [Unknown]
  - Galactorrhoea [Recovered/Resolved]

NARRATIVE: CASE EVENT DATE: 2018
